FAERS Safety Report 18907888 (Version 1)
Quarter: 2021Q1

REPORT INFORMATION
  Report Type: Spontaneous
  Country: US (occurrence: US)
  Receive Date: 20210218
  Receipt Date: 20210218
  Transmission Date: 20210420
  Serious: No
  Sender: FDA-Public Use
  Company Number: US-GLAXOSMITHKLINE-US2021040292

PATIENT
  Sex: Female

DRUGS (2)
  1. BENLYSTA [Suspect]
     Active Substance: BELIMUMAB
     Indication: SYSTEMIC LUPUS ERYTHEMATOSUS
     Dosage: UNK UNK, CYC
     Route: 058
     Dates: start: 20210115
  2. NAPROXEN. [Concomitant]
     Active Substance: NAPROXEN
     Indication: PRODUCT USED FOR UNKNOWN INDICATION
     Dosage: UNK, 500MG , AS REQUIRED

REACTIONS (12)
  - Injection site bruising [Recovered/Resolved]
  - Urine analysis abnormal [Unknown]
  - Acne cystic [Not Recovered/Not Resolved]
  - Musculoskeletal stiffness [Not Recovered/Not Resolved]
  - Injection site pain [Recovered/Resolved]
  - Red blood cell sedimentation rate increased [Unknown]
  - Dizziness [Not Recovered/Not Resolved]
  - Hyperaesthesia teeth [Not Recovered/Not Resolved]
  - C-reactive protein abnormal [Unknown]
  - Pain in extremity [Not Recovered/Not Resolved]
  - Carbon dioxide abnormal [Unknown]
  - White blood cells urine positive [Unknown]
